FAERS Safety Report 7734378-8 (Version None)
Quarter: 2011Q3

REPORT INFORMATION
  Report Type: 
  Country: None (occurrence: None)
  Receive Date: 20110907
  Receipt Date: 20110829
  Transmission Date: 20111222
  Serious: Yes (Other)
  Sender: FDA-Public Use
  Company Number: US-ASTRAZENECA-2011SE40518

PATIENT
  Age: 56 Year
  Sex: Female

DRUGS (6)
  1. NEXIUM [Suspect]
     Route: 048
  2. CARAFATE [Concomitant]
  3. ROZEREM [Concomitant]
  4. PRILOSEC [Suspect]
     Route: 048
  5. VENTOLIN HFA [Concomitant]
     Dosage: 2 PUFFS BID
  6. ADVAIR DISKUS 100/50 [Concomitant]
     Dosage: 250/50 1 PUFF BID

REACTIONS (4)
  - MOUTH ULCERATION [None]
  - OESOPHAGEAL ULCER [None]
  - HAEMOGLOBIN DECREASED [None]
  - HAEMORRHAGE [None]
